FAERS Safety Report 15637934 (Version 1)
Quarter: 2018Q4

REPORT INFORMATION
  Report Type: Spontaneous
  Country: US (occurrence: US)
  Receive Date: 20181120
  Receipt Date: 20181120
  Transmission Date: 20190205
  Serious: No
  Sender: FDA-Public Use
  Company Number: US-JNJFOC-20180708513

PATIENT
  Sex: Female
  Weight: 61 kg

DRUGS (7)
  1. CARVEDILOL. [Concomitant]
     Active Substance: CARVEDILOL
  2. THIOCTIC ACID [Suspect]
     Active Substance: THIOCTIC ACID
     Indication: PRODUCT USED FOR UNKNOWN INDICATION
     Route: 065
  3. IMBRUVICA [Suspect]
     Active Substance: IBRUTINIB
     Indication: B-CELL LYMPHOMA
     Route: 048
  4. LISINOPRIL. [Concomitant]
     Active Substance: LISINOPRIL
  5. IMBRUVICA [Suspect]
     Active Substance: IBRUTINIB
     Indication: B-CELL LYMPHOMA
     Route: 048
     Dates: start: 201601
  6. BIFIDOBACTERIUM LACTIS [Concomitant]
     Active Substance: BIFIDOBACTERIUM ANIMALIS LACTIS
  7. ZOFRAN [Concomitant]
     Active Substance: ONDANSETRON HYDROCHLORIDE

REACTIONS (2)
  - Pruritus [Unknown]
  - Contusion [Unknown]

NARRATIVE: CASE EVENT DATE: 2018
